FAERS Safety Report 7988813-0 (Version None)
Quarter: 2011Q4

REPORT INFORMATION
  Report Type: 
  Country: None (occurrence: None)
  Receive Date: 20111219
  Receipt Date: 20111021
  Transmission Date: 20120403
  Serious: Yes (Hospitalization)
  Sender: FDA-Public Use
  Company Number: US-BAYER-2011-103349

PATIENT
  Age: 67 Year
  Sex: Female

DRUGS (4)
  1. NAPROXEN SODIUM [Suspect]
     Indication: ARTHRALGIA
     Dosage: 1 DF, UNK
     Dates: start: 20110927, end: 20111007
  2. WHOLE BLOOD [Concomitant]
     Indication: HAEMOGLOBIN DECREASED
     Dosage: 2 IU, UNK
     Route: 042
     Dates: start: 20111018, end: 20111018
  3. IRON [Concomitant]
     Indication: HAEMOGLOBIN DECREASED
     Dosage: 1 DF, TID
     Dates: start: 20111019
  4. ASPIRIN [Concomitant]
     Dosage: DAILY DOSE 81 MG
     Route: 048
     Dates: start: 20010101, end: 20111007

REACTIONS (3)
  - HAEMOGLOBIN DECREASED [None]
  - ABDOMINAL PAIN [None]
  - DIARRHOEA HAEMORRHAGIC [None]
